FAERS Safety Report 12319825 (Version 2)
Quarter: 2016Q2

REPORT INFORMATION
  Report Type: Spontaneous
  Country: US (occurrence: US)
  Receive Date: 20160429
  Receipt Date: 20160620
  Transmission Date: 20160815
  Serious: No
  Sender: FDA-Public Use
  Company Number: US-JNJFOC-20160401693

PATIENT
  Sex: Male

DRUGS (2)
  1. GENERIC FENTANYL [Suspect]
     Active Substance: FENTANYL
     Indication: PAIN
     Route: 062
  2. DURAGESIC [Suspect]
     Active Substance: FENTANYL
     Indication: PAIN
     Route: 062
     Dates: start: 2002

REACTIONS (6)
  - Therapeutic response decreased [Unknown]
  - Dry skin [Unknown]
  - Product physical consistency issue [Unknown]
  - Product quality issue [Unknown]
  - Product adhesion issue [Unknown]
  - Memory impairment [Unknown]

NARRATIVE: CASE EVENT DATE: 2002
